FAERS Safety Report 9602015 (Version 3)
Quarter: 2017Q3

REPORT INFORMATION
  Report Type: Spontaneous
  Country: FR (occurrence: FR)
  Receive Date: 20131007
  Receipt Date: 20170803
  Transmission Date: 20171128
  Serious: Yes (Other)
  Sender: FDA-Public Use
  Company Number: FR-MERCK-1310FRA001606

PATIENT
  Age: 78 Year
  Sex: Male

DRUGS (2)
  1. XELEVIA [Suspect]
     Active Substance: SITAGLIPTIN PHOSPHATE
     Indication: DIABETES MELLITUS
     Dosage: 100 MG, QD
     Route: 048
     Dates: start: 20110628
  2. DIAMICRON [Suspect]
     Active Substance: GLICLAZIDE
     Indication: DIABETES MELLITUS
     Dosage: 60 MG, QD
     Route: 048
     Dates: start: 20121121

REACTIONS (1)
  - Pemphigus [Recovered/Resolved]

NARRATIVE: CASE EVENT DATE: 201211
